FAERS Safety Report 18147382 (Version 4)
Quarter: 2023Q2

REPORT INFORMATION
  Report Type: Spontaneous
  Country: US (occurrence: US)
  Receive Date: 20200813
  Receipt Date: 20230406
  Transmission Date: 20230721
  Serious: Yes (Hospitalization, Other)
  Sender: FDA-Public Use
  Company Number: US-GILEAD-2020-0489260

PATIENT
  Age: 41 Year
  Sex: Male
  Weight: 111.11 kg

DRUGS (57)
  1. ATRIPLA [Suspect]
     Active Substance: EFAVIRENZ\EMTRICITABINE\TENOFOVIR DISOPROXIL FUMARATE
     Indication: HIV infection
     Dosage: UNK
     Route: 048
     Dates: start: 2001, end: 201607
  2. ATRIPLA [Suspect]
     Active Substance: EFAVIRENZ\EMTRICITABINE\TENOFOVIR DISOPROXIL FUMARATE
     Dosage: UNK
     Route: 048
     Dates: start: 201301, end: 201607
  3. VIREAD [Suspect]
     Active Substance: TENOFOVIR DISOPROXIL FUMARATE
     Indication: HIV infection
     Dosage: UNK
     Route: 048
     Dates: start: 2001, end: 201301
  4. VIREAD [Suspect]
     Active Substance: TENOFOVIR DISOPROXIL FUMARATE
     Dosage: UNK
     Route: 048
     Dates: start: 200409, end: 201301
  5. TRUVADA [Suspect]
     Active Substance: EMTRICITABINE\TENOFOVIR DISOPROXIL FUMARATE
     Indication: HIV infection
     Dosage: UNK
     Route: 065
     Dates: start: 201301, end: 201501
  6. GENVOYA [Concomitant]
     Active Substance: COBICISTAT\ELVITEGRAVIR\EMTRICITABINE\TENOFOVIR ALAFENAMIDE FUMARATE
  7. EPIVIR [Concomitant]
     Active Substance: LAMIVUDINE
  8. SUSTIVA [Concomitant]
     Active Substance: EFAVIRENZ
  9. TRIZIVIR [Concomitant]
     Active Substance: ABACAVIR SULFATE\LAMIVUDINE\ZIDOVUDINE
  10. VIDEX [Concomitant]
     Active Substance: DIDANOSINE
  11. VIDEX EC [Concomitant]
     Active Substance: DIDANOSINE
  12. ACETAMINOPHEN\HYDROCODONE [Concomitant]
     Active Substance: ACETAMINOPHEN\HYDROCODONE
  13. AMLODIPINE [Concomitant]
     Active Substance: AMLODIPINE BESYLATE
  14. APIXABAN [Concomitant]
     Active Substance: APIXABAN
  15. ASPIRIN [Concomitant]
     Active Substance: ASPIRIN
  16. ATENOLOL [Concomitant]
     Active Substance: ATENOLOL
  17. ATROPINE\DIPHENOXYLATE [Concomitant]
     Active Substance: ATROPINE\DIPHENOXYLATE
  18. CLONAZEPAM [Concomitant]
     Active Substance: CLONAZEPAM
  19. CLONIDINE [Concomitant]
     Active Substance: CLONIDINE
  20. COBICISTAT\ELVITEGRAVIR\EMTRICITABINE\TENOFOVIR [Concomitant]
     Active Substance: COBICISTAT\ELVITEGRAVIR\EMTRICITABINE\TENOFOVIR
  21. CODEINE\GUAIFENESIN [Concomitant]
     Active Substance: CODEINE\GUAIFENESIN
  22. DIDANOSINE [Concomitant]
     Active Substance: DIDANOSINE
  23. DIFLUNISAL [Concomitant]
     Active Substance: DIFLUNISAL
  24. DOXAZOSIN [Concomitant]
     Active Substance: DOXAZOSIN MESYLATE
  25. EFAVIRENZ [Concomitant]
     Active Substance: EFAVIRENZ
  26. EFAVIRENZ;EMTRICITABINE;TENOFOVIR [Concomitant]
  27. EMTRICITABINE\TENOFOVIR [Concomitant]
     Active Substance: EMTRICITABINE\TENOFOVIR
  28. FELODIPINE [Concomitant]
     Active Substance: FELODIPINE
  29. FLUOXETINE [Concomitant]
     Active Substance: FLUOXETINE HYDROCHLORIDE
  30. GABAPENTIN [Concomitant]
     Active Substance: GABAPENTIN
  31. HALOPERIDOL [Concomitant]
     Active Substance: HALOPERIDOL
  32. HEPARIN [Concomitant]
     Active Substance: HEPARIN SODIUM
  33. HYDROCHLOROTHIAZIDE [Concomitant]
     Active Substance: HYDROCHLOROTHIAZIDE
  34. HYDROCHLOROTHIAZIDE\LISINOPRIL [Concomitant]
     Active Substance: HYDROCHLOROTHIAZIDE\LISINOPRIL
  35. HYDROCODONE [Concomitant]
     Active Substance: HYDROCODONE
  36. HYDROXYZINE [Concomitant]
     Active Substance: HYDROXYZINE HYDROCHLORIDE
  37. IBUPROFEN [Concomitant]
     Active Substance: IBUPROFEN
  38. INFLUENZA VIRUS VACCINE [Concomitant]
     Active Substance: INFLUENZA VIRUS VACCINE
  39. LEVOCETIRIZINE [Concomitant]
     Active Substance: LEVOCETIRIZINE
  40. LISINOPRIL [Concomitant]
     Active Substance: LISINOPRIL
  41. LORAZEPAM [Concomitant]
     Active Substance: LORAZEPAM
  42. MELOXICAM [Concomitant]
     Active Substance: MELOXICAM
  43. MIRTAZAPINE [Concomitant]
     Active Substance: MIRTAZAPINE
  44. VITAMINS [Concomitant]
     Active Substance: VITAMINS
  45. OXYCODONE [Concomitant]
     Active Substance: OXYCODONE
  46. ACETAMINOPHEN\OXYCODONE HYDROCHLORIDE\OXYCODONE TEREPHTHALATE [Concomitant]
     Active Substance: ACETAMINOPHEN\OXYCODONE HYDROCHLORIDE\OXYCODONE TEREPHTHALATE
  47. PREDNISONE [Concomitant]
     Active Substance: PREDNISONE
  48. QUETIAPINE [Concomitant]
     Active Substance: QUETIAPINE
  49. SODIUM CHLORIDE [Concomitant]
     Active Substance: SODIUM CHLORIDE
  50. TENOFOVIR [Concomitant]
     Active Substance: TENOFOVIR
  51. TETANUS AND DIPHTHERIA TOXOIDS ADSORBED (VACCINE) [Concomitant]
     Active Substance: CLOSTRIDIUM TETANI\CLOSTRIDIUM TETANI TOXOID ANTIGEN (FORMALDEHYDE INACTIVATED)\CORYNEBACTERIUM DIPH
  52. TOPIRAMATE [Concomitant]
     Active Substance: TOPIRAMATE
  53. ACETAMINOPHEN\PSEUDOEPHEDRINE HYDROCHLORIDE [Concomitant]
     Active Substance: ACETAMINOPHEN\PSEUDOEPHEDRINE HYDROCHLORIDE
  54. VERAPAMIL [Concomitant]
     Active Substance: VERAPAMIL HYDROCHLORIDE
  55. XANAX [Concomitant]
     Active Substance: ALPRAZOLAM
  56. ZIPRASIDONE [Concomitant]
     Active Substance: ZIPRASIDONE
  57. ALPRAZOLAM [Concomitant]
     Active Substance: ALPRAZOLAM

REACTIONS (8)
  - Chronic kidney disease [Not Recovered/Not Resolved]
  - Acute kidney injury [Recovered/Resolved]
  - Emotional distress [Not Recovered/Not Resolved]
  - Anhedonia [Unknown]
  - Bone density decreased [Unknown]
  - Renal impairment [Not Recovered/Not Resolved]
  - Anxiety [Unknown]
  - Pain [Not Recovered/Not Resolved]

NARRATIVE: CASE EVENT DATE: 20130101
